FAERS Safety Report 18392025 (Version 1)
Quarter: 2020Q4

REPORT INFORMATION
  Report Type: Spontaneous
  Country: US (occurrence: US)
  Receive Date: 20201016
  Receipt Date: 20201016
  Transmission Date: 20210114
  Serious: No
  Sender: FDA-Public Use
  Company Number: None

PATIENT
  Age: 36 Year
  Sex: Female
  Weight: 74.39 kg

DRUGS (1)
  1. INJECTAFER [Suspect]
     Active Substance: FERRIC CARBOXYMALTOSE
     Indication: IRON DEFICIENCY ANAEMIA
     Dosage: ?          OTHER FREQUENCY:Q7DAYS X2;?
     Route: 042
     Dates: start: 20201016, end: 20201016

REACTIONS (4)
  - Nausea [None]
  - Hot flush [None]
  - Palpitations [None]
  - Infusion related reaction [None]

NARRATIVE: CASE EVENT DATE: 20201016
